FAERS Safety Report 9361873 (Version 3)
Quarter: 2013Q4

REPORT INFORMATION
  Report Type: Spontaneous
  Country: US (occurrence: US)
  Receive Date: 20130621
  Receipt Date: 20131216
  Transmission Date: 20140711
  Serious: Yes (Hospitalization)
  Sender: FDA-Public Use
  Company Number: US-GLAXOSMITHKLINE-A1027751A

PATIENT
  Age: 72 Year
  Sex: Female
  Weight: 70 kg

DRUGS (4)
  1. PROMACTA [Suspect]
     Indication: THROMBOCYTOPENIA
     Dosage: 25MG PER DAY
     Route: 048
     Dates: start: 20130516, end: 20130603
  2. BIOTENE MOUTHWASH [Concomitant]
  3. AZOR (AMLODIPINE BESILATE + OLMESARTAN MEDOXOMIL) [Concomitant]
  4. OYSTER SHELL CALCIUM + VITAMIN D [Concomitant]

REACTIONS (1)
  - Hepatic failure [Recovered/Resolved]
